FAERS Safety Report 8513017-2 (Version None)
Quarter: 2012Q3

REPORT INFORMATION
  Report Type: 
  Country: None (occurrence: None)
  Receive Date: 20120716
  Receipt Date: 20120710
  Transmission Date: 20120928
  Serious: Yes (Disabling, Other)
  Sender: FDA-Public Use
  Company Number: US-PFIZER INC-2012166301

PATIENT
  Age: 62 Year
  Sex: Female

DRUGS (3)
  1. ATORVASTATIN CALCIUM [Suspect]
     Dosage: UNK
  2. LIORESAL [Suspect]
     Dosage: UNK
  3. VITAMIN B COMPLEX CAP [Suspect]
     Dosage: UNK

REACTIONS (4)
  - PARAESTHESIA [None]
  - MUSCULAR WEAKNESS [None]
  - MUSCLE SPASMS [None]
  - FEELING OF DESPAIR [None]
